FAERS Safety Report 5822351-6 (Version None)
Quarter: 2008Q3

REPORT INFORMATION
  Report Type: 
  Country: None (occurrence: None)
  Receive Date: 20080723
  Receipt Date: 20080723
  Transmission Date: 20090109
  Serious: Yes (Life-Threatening, Hospitalization)
  Sender: FDA-Public Use
  Company Number: None

PATIENT
  Age: 33 Year
  Sex: Male
  Weight: 79.3795 kg

DRUGS (1)
  1. MEFLOQUINE [Suspect]
     Indication: MALARIA
     Dates: start: 20080520, end: 20080612

REACTIONS (2)
  - GRAND MAL CONVULSION [None]
  - UPPER LIMB FRACTURE [None]
